FAERS Safety Report 18650352 (Version 5)
Quarter: 2021Q1

REPORT INFORMATION
  Report Type: Report from Study
  Country: US (occurrence: US)
  Receive Date: 20201222
  Receipt Date: 20210210
  Transmission Date: 20210419
  Serious: Yes (Life-Threatening, Hospitalization, Other)
  Sender: FDA-Public Use
  Company Number: US-BRISTOL-MYERS SQUIBB COMPANY-BMS-2020-105731

PATIENT
  Age: 63 Year
  Sex: Male
  Weight: 60.8 kg

DRUGS (4)
  1. BELATACEPT [Suspect]
     Active Substance: BELATACEPT
     Dosage: 5 MILLIGRAM/KILOGRAM (DAY 112 ? 364)
     Route: 042
     Dates: start: 20201202
  2. MMF [Concomitant]
     Active Substance: MYCOPHENOLATE MOFETIL
     Indication: PRODUCT USED FOR UNKNOWN INDICATION
     Dosage: ON HOLD
     Route: 065
  3. BELATACEPT [Suspect]
     Active Substance: BELATACEPT
     Indication: LUNG TRANSPLANT
     Dosage: 10 MILLIGRAM/KILOGRAM (DAY 0?84)
     Route: 042
     Dates: start: 20200815, end: 20201104
  4. PREDNISONE. [Concomitant]
     Active Substance: PREDNISONE
     Indication: PRODUCT USED FOR UNKNOWN INDICATION
     Dosage: 5 MILLIGRAM
     Route: 065

REACTIONS (1)
  - Pneumonia [Unknown]

NARRATIVE: CASE EVENT DATE: 20201207
